FAERS Safety Report 4601103-9 (Version None)
Quarter: 2005Q1

REPORT INFORMATION
  Report Type: 
  Country: None (occurrence: None)
  Receive Date: 20050304
  Receipt Date: 20050304
  Transmission Date: 20050727
  Serious: No
  Sender: FDA-Public Use
  Company Number: None

PATIENT
  Sex: Female

DRUGS (1)
  1. ALBUTEROL [Suspect]
     Dosage: 2.5 MG ONCE RESPIRATORY
     Route: 055
     Dates: start: 20050304, end: 20050304

REACTIONS (1)
  - PULMONARY FUNCTION TEST ABNORMAL [None]
